FAERS Safety Report 6985222-8 (Version None)
Quarter: 2010Q3

REPORT INFORMATION
  Report Type: 
  Country: None (occurrence: None)
  Receive Date: 20100915
  Receipt Date: 20100909
  Transmission Date: 20110219
  Serious: Yes (Other)
  Sender: FDA-Public Use
  Company Number: RU-ROCHE-726592

PATIENT
  Age: 8 Year
  Sex: Female
  Weight: 24 kg

DRUGS (2)
  1. ROCEPHIN [Suspect]
     Indication: APPENDICEAL ABSCESS
     Route: 042
     Dates: start: 20100817, end: 20100820
  2. METRONIDAZOLE [Concomitant]
     Indication: APPENDICEAL ABSCESS
     Dosage: DRUG REPORTED: TRIHOPOL
     Route: 042
     Dates: start: 20100817, end: 20100820

REACTIONS (5)
  - BLOOD CREATININE INCREASED [None]
  - CHOLELITHIASIS [None]
  - FUNGAL SKIN INFECTION [None]
  - GASTROINTESTINAL FUNGAL INFECTION [None]
  - VULVITIS [None]
